FAERS Safety Report 19761634 (Version 3)
Quarter: 2021Q4

REPORT INFORMATION
  Report Type: Report from Study
  Country: ES (occurrence: ES)
  Receive Date: 20210827
  Receipt Date: 20211207
  Transmission Date: 20220303
  Serious: Yes (Hospitalization)
  Sender: FDA-Public Use
  Company Number: ES-TAKEDA-2021TUS052278

PATIENT
  Age: 3 Year
  Sex: Female

DRUGS (12)
  1. TEDUGLUTIDE [Suspect]
     Active Substance: TEDUGLUTIDE
     Indication: Short-bowel syndrome
     Dosage: 0.29 MILLIGRAM, QD
     Route: 065
     Dates: start: 20190311, end: 20200601
  2. TEDUGLUTIDE [Suspect]
     Active Substance: TEDUGLUTIDE
     Indication: Short-bowel syndrome
     Dosage: 0.29 MILLIGRAM, QD
     Route: 065
     Dates: start: 20190311, end: 20200601
  3. TEDUGLUTIDE [Suspect]
     Active Substance: TEDUGLUTIDE
     Indication: Short-bowel syndrome
     Dosage: 0.29 MILLIGRAM, QD
     Route: 065
     Dates: start: 20190311, end: 20200601
  4. TEDUGLUTIDE [Suspect]
     Active Substance: TEDUGLUTIDE
     Indication: Short-bowel syndrome
     Dosage: 0.29 MILLIGRAM, QD
     Route: 065
     Dates: start: 20190311, end: 20200601
  5. TEDUGLUTIDE [Suspect]
     Active Substance: TEDUGLUTIDE
     Dosage: 0.40 MILLIGRAM, QD
     Route: 065
     Dates: start: 20200601
  6. TEDUGLUTIDE [Suspect]
     Active Substance: TEDUGLUTIDE
     Dosage: 0.40 MILLIGRAM, QD
     Route: 065
     Dates: start: 20200601
  7. TEDUGLUTIDE [Suspect]
     Active Substance: TEDUGLUTIDE
     Dosage: 0.40 MILLIGRAM, QD
     Route: 065
     Dates: start: 20200601
  8. TEDUGLUTIDE [Suspect]
     Active Substance: TEDUGLUTIDE
     Dosage: 0.40 MILLIGRAM, QD
     Route: 065
     Dates: start: 20200601
  9. SODIUM CITRATE [Concomitant]
     Active Substance: SODIUM CITRATE
     Dosage: 3 MILLILITER, TID
     Route: 048
     Dates: start: 20210330, end: 20210615
  10. BEMIPARIN SODIUM [Concomitant]
     Active Substance: BEMIPARIN SODIUM
     Dosage: 937 INTERNATIONAL UNIT, QD
     Route: 058
     Dates: start: 2018
  11. CUPRIC SULFATE ANHYDROUS [Concomitant]
     Active Substance: CUPRIC SULFATE ANHYDROUS
     Dosage: 100 MICROGRAM, TID
     Route: 048
     Dates: start: 2018, end: 20210330
  12. URSODIOL [Concomitant]
     Active Substance: URSODIOL
     Dosage: 62.50 MILLIGRAM, BID
     Route: 048
     Dates: start: 20200601

REACTIONS (2)
  - Gastroenteritis [Recovered/Resolved]
  - Diarrhoea [Recovered/Resolved]

NARRATIVE: CASE EVENT DATE: 20210304
